FAERS Safety Report 14756136 (Version 1)
Quarter: 2018Q2

REPORT INFORMATION
  Report Type: Spontaneous
  Country: US (occurrence: US)
  Receive Date: 20180413
  Receipt Date: 20180413
  Transmission Date: 20180711
  Serious: Yes (Other)
  Sender: FDA-Public Use
  Company Number: US-ROCHE-2105191

PATIENT
  Age: 61 Year
  Sex: Male
  Weight: 80.36 kg

DRUGS (3)
  1. XOLAIR [Suspect]
     Active Substance: OMALIZUMAB
     Indication: URTICARIA
     Route: 042
     Dates: start: 20180319
  2. TYLENOL [Concomitant]
     Active Substance: ACETAMINOPHEN
     Dosage: 2 TABLETS 500 MG ONCE OR TWICE A DAY
     Route: 048
     Dates: start: 20180327, end: 20180405
  3. ALEVE [Concomitant]
     Active Substance: NAPROXEN SODIUM
     Dosage: ONCE OR TWICE A DAY
     Route: 048
     Dates: start: 20180327

REACTIONS (10)
  - Eye disorder [Unknown]
  - Eye pain [Unknown]
  - Diplopia [Not Recovered/Not Resolved]
  - Eye swelling [Recovered/Resolved]
  - Blood glucose increased [Unknown]
  - Eye swelling [Recovered/Resolved]
  - Drug ineffective [Unknown]
  - Vertigo [Not Recovered/Not Resolved]
  - Blindness unilateral [Not Recovered/Not Resolved]
  - Urticaria [Not Recovered/Not Resolved]

NARRATIVE: CASE EVENT DATE: 20180326
